FAERS Safety Report 8807291 (Version 1)
Quarter: 2012Q4

REPORT INFORMATION
  Report Type: 
  Country: GB (occurrence: GB)
  Receive Date: 20120925
  Receipt Date: 20120925
  Transmission Date: 20130627
  Serious: Yes (Other)
  Sender: FDA-Public Use
  Company Number: GB-WATSON-2012-16346

PATIENT
  Age: 74 Year
  Sex: Female

DRUGS (2)
  1. PRAMIPEXOLE [Suspect]
     Indication: PARKINSON^S DISEASE
     Dosage: 0.18 mg, tid
     Route: 065
  2. RASAGILINE [Suspect]
     Indication: PARKINSON^S DISEASE
     Dosage: 1 mg, daily
     Route: 065

REACTIONS (1)
  - Pleurothotonus [Recovered/Resolved]
